FAERS Safety Report 13314487 (Version 13)
Quarter: 2019Q2

REPORT INFORMATION
  Report Type: Report from Study
  Country: US (occurrence: US)
  Receive Date: 20170309
  Receipt Date: 20190430
  Transmission Date: 20190711
  Serious: Yes (Hospitalization)
  Sender: FDA-Public Use
  Company Number: US-ACTELION-A-NJ2017-150010

PATIENT
  Age: 59 Year
  Sex: Female
  Weight: 117.91 kg

DRUGS (7)
  1. ADCIRCA [Concomitant]
     Active Substance: TADALAFIL
  2. TYVASO [Suspect]
     Active Substance: TREPROSTINIL
     Indication: PRODUCT USED FOR UNKNOWN INDICATION
     Dosage: UNK
     Route: 065
     Dates: start: 20170301
  3. ORENITRAM [Concomitant]
     Active Substance: TREPROSTINIL
     Dosage: UNK
  4. OPSUMIT [Suspect]
     Active Substance: MACITENTAN
     Dosage: UNK
     Route: 048
  5. TYVASO [Suspect]
     Active Substance: TREPROSTINIL
     Dosage: UNK
     Route: 065
     Dates: end: 20170301
  6. REMODULIN [Suspect]
     Active Substance: TREPROSTINIL
     Indication: PRODUCT USED FOR UNKNOWN INDICATION
     Dosage: UNK
     Route: 058
  7. OPSUMIT [Suspect]
     Active Substance: MACITENTAN
     Indication: PULMONARY ARTERIAL HYPERTENSION
     Dosage: 10 MG, QD
     Route: 048

REACTIONS (34)
  - Disease progression [Unknown]
  - Gait disturbance [Unknown]
  - Back pain [Unknown]
  - Chest pain [Recovered/Resolved]
  - Blood pressure decreased [Recovered/Resolved]
  - Headache [Unknown]
  - Arthralgia [Unknown]
  - Pain in extremity [Unknown]
  - Haematochezia [Unknown]
  - Flushing [Unknown]
  - Hot flush [Unknown]
  - Skin discomfort [Unknown]
  - Chest discomfort [Unknown]
  - Right ventricular failure [Unknown]
  - Myalgia [Recovered/Resolved]
  - Weight decreased [Unknown]
  - Abdominal pain [Unknown]
  - Pain in jaw [Unknown]
  - Muscle spasms [Unknown]
  - Adverse drug reaction [Unknown]
  - Dyspnoea [Not Recovered/Not Resolved]
  - Syncope [Unknown]
  - Catheter site erythema [Unknown]
  - Epistaxis [Recovered/Resolved]
  - Pulmonary hypertension [Unknown]
  - Abdominal pain upper [Unknown]
  - Pain [Recovered/Resolved]
  - Oedema [Recovered/Resolved]
  - Pneumonia [Unknown]
  - Condition aggravated [Unknown]
  - Vomiting [Unknown]
  - Catheter site pain [Unknown]
  - Nausea [Unknown]
  - Adverse event [Unknown]

NARRATIVE: CASE EVENT DATE: 20170209
